FAERS Safety Report 4527095-9 (Version None)
Quarter: 2004Q4

REPORT INFORMATION
  Report Type: 
  Country: None (occurrence: None)
  Receive Date: 20041129
  Receipt Date: 20040609
  Transmission Date: 20050328
  Serious: Yes (Hospitalization, Other)
  Sender: FDA-Public Use
  Company Number: USA040567106

PATIENT
  Age: 34 Year
  Sex: Male
  Weight: 100 kg

DRUGS (4)
  1. ZYPREXA [Suspect]
     Indication: AFFECTIVE DISORDER
     Dosage: 25 MG/EVERY AT BEDTIME
  2. TOPAMAX [Concomitant]
  3. ZOLOFT [Concomitant]
  4. TEGRETOL [Concomitant]

REACTIONS (2)
  - DIABETIC KETOACIDOSIS [None]
  - PRESCRIBED OVERDOSE [None]
